FAERS Safety Report 5688150-3 (Version None)
Quarter: 2008Q1

REPORT INFORMATION
  Report Type: 
  Country: None (occurrence: None)
  Receive Date: 20080327
  Receipt Date: 20080311
  Transmission Date: 20080703
  Serious: Yes (Life-Threatening, Hospitalization)
  Sender: FDA-Public Use
  Company Number: 2008JP001161

PATIENT
  Age: 61 Year
  Sex: Male

DRUGS (9)
  1. PROGRAF [Suspect]
     Indication: RHEUMATOID ARTHRITIS
     Dosage: 1 MG, UID/QD, ORAL
     Route: 048
     Dates: start: 20060602, end: 20060824
  2. ENBREL [Suspect]
     Indication: RHEUMATOID ARTHRITIS
     Dosage: 50 MG, WEEKLY, SUBCUTANEOUS, 50 MG, WEEKLY, SUBCUTANEOUS
     Route: 058
     Dates: start: 20060124, end: 20060818
  3. ENBREL [Suspect]
     Indication: RHEUMATOID ARTHRITIS
     Dosage: 50 MG, WEEKLY, SUBCUTANEOUS, 50 MG, WEEKLY, SUBCUTANEOUS
     Route: 058
     Dates: start: 20060824
  4. PREDNISOLONE [Suspect]
     Indication: RHEUMATOID ARTHRITIS
     Dosage: 20 MG, UID/QD, ORAL
     Route: 048
     Dates: start: 20020201, end: 20050120
  5. PREDNISOLONE [Suspect]
     Indication: RHEUMATOID ARTHRITIS
     Dosage: 20 MG, UID/QD, NASAL
     Route: 045
     Dates: start: 20050124
  6. MINOCYCLINE HCL [Concomitant]
  7. BONALON (ALENDRONIC ACID) [Concomitant]
  8. PIPERACILLIN SODIUM [Concomitant]
  9. FLOMOX (CEFCAPENE PIVOXIL HYDROCHLORIDE) [Concomitant]

REACTIONS (4)
  - DIPLEGIA [None]
  - INFECTION [None]
  - SPONDYLOARTHROPATHY [None]
  - URINARY RETENTION [None]
